FAERS Safety Report 7382350-2 (Version None)
Quarter: 2011Q1

REPORT INFORMATION
  Report Type: 
  Country: None (occurrence: None)
  Receive Date: 20110329
  Receipt Date: 20110228
  Transmission Date: 20110831
  Serious: Yes (Hospitalization, Other)
  Sender: FDA-Public Use
  Company Number: US-BAYER-201042128NA

PATIENT
  Sex: Female
  Weight: 70 kg

DRUGS (6)
  1. YAZ [Suspect]
     Indication: PREMENSTRUAL SYNDROME
  2. UNCODEABLE ^UNCLASSIFIABLE^ [Concomitant]
     Dosage: UNK
     Route: 048
     Dates: start: 20060101
  3. YAZ [Suspect]
     Indication: ACNE
     Dosage: UNK UNK, UNK
     Route: 048
     Dates: start: 20080301, end: 20081001
  4. YASMIN [Suspect]
     Indication: PREMENSTRUAL SYNDROME
     Route: 048
     Dates: start: 20080201, end: 20080925
  5. YASMIN [Suspect]
     Indication: ACNE
  6. LEXAPRO [Concomitant]
     Dosage: 10 MG, QD

REACTIONS (7)
  - HYPERHIDROSIS [None]
  - CHOLELITHIASIS [None]
  - BACK PAIN [None]
  - CHOLECYSTITIS [None]
  - CHEST PAIN [None]
  - CHOLECYSTECTOMY [None]
  - VOMITING [None]
